FAERS Safety Report 8482156-7 (Version None)
Quarter: 2012Q3

REPORT INFORMATION
  Report Type: 
  Country: None (occurrence: None)
  Receive Date: 20120702
  Receipt Date: 20120622
  Transmission Date: 20120928
  Serious: No
  Sender: FDA-Public Use
  Company Number: JP-ASTRAZENECA-2012SE40382

PATIENT
  Sex: Male
  Weight: 2 kg

DRUGS (1)
  1. TENORMIN [Suspect]
     Route: 064
     Dates: start: 20100101, end: 20100101

REACTIONS (1)
  - NEONATAL RESPIRATORY DISTRESS SYNDROME [None]
